FAERS Safety Report 6595227-7 (Version None)
Quarter: 2010Q1

REPORT INFORMATION
  Report Type: 
  Country: None (occurrence: None)
  Receive Date: 20100212
  Receipt Date: 20100127
  Transmission Date: 20100710
  Serious: Yes (Other)
  Sender: FDA-Public Use
  Company Number: ALL1-2010-00460

PATIENT
  Age: 34 Year
  Sex: Female

DRUGS (1)
  1. ADDERALL 10 [Suspect]
     Indication: ATTENTION DEFICIT/HYPERACTIVITY DISORDER
     Dosage: 25 MG, 1X/DAY:QD, ORAL
     Route: 048
     Dates: start: 20090801, end: 20090101

REACTIONS (2)
  - PALPITATIONS [None]
  - SYNCOPE [None]
